FAERS Safety Report 6372616-7 (Version None)
Quarter: 2009Q3

REPORT INFORMATION
  Report Type: 
  Country: None (occurrence: None)
  Receive Date: 20090922
  Receipt Date: 20090922
  Transmission Date: 20100115
  Serious: Yes (Hospitalization)
  Sender: FDA-Public Use
  Company Number: None

PATIENT
  Sex: Male
  Weight: 100 kg

DRUGS (1)
  1. DEPAKOTE ER [Suspect]
     Indication: EPILEPSY
     Dosage: 1500 MG DAILY PO (047)
     Route: 048
     Dates: start: 20090401, end: 20090810

REACTIONS (4)
  - CONDITION AGGRAVATED [None]
  - CONVULSION [None]
  - PRODUCT SUBSTITUTION ISSUE [None]
  - SINUSITIS [None]
